FAERS Safety Report 9402753 (Version 2)
Quarter: 2013Q3

REPORT INFORMATION
  Report Type: Spontaneous
  Country: NL (occurrence: NL)
  Receive Date: 20130716
  Receipt Date: 20130906
  Transmission Date: 20140515
  Serious: Yes (Other)
  Sender: FDA-Public Use
  Company Number: NL-PFIZER INC-2013204363

PATIENT
  Age: 83 Year
  Sex: Male

DRUGS (8)
  1. AMLODIPINE BESILATE [Suspect]
     Indication: ANGINA PECTORIS
     Dosage: 5 MG, 1X/DAY
     Route: 048
     Dates: start: 20130507
  2. AMOXICILLINE/CLAVULAANZUUR [Interacting]
     Indication: PROSTATITIS
     Dosage: 1 DF, 3X/DAY
     Route: 048
     Dates: start: 20130507
  3. RAMIPRIL [Interacting]
     Indication: ANGINA PECTORIS
     Dosage: 2.5 MG, 2X/DAY
     Route: 048
     Dates: start: 20050307
  4. AMIODARON [Interacting]
     Indication: ATRIAL FIBRILLATION
     Dosage: 200 MG, 1X/DAY
     Route: 048
     Dates: start: 19990527
  5. ISOSORBIDE MONONITRATE [Interacting]
     Indication: ANGINA PECTORIS
     Dosage: 25 MG, 1X/DAY
     Route: 048
     Dates: start: 19990726
  6. SIMVASTATIN [Concomitant]
     Indication: ANGINA PECTORIS
     Dosage: 20 MG, 1X/DAY
     Dates: start: 19990726
  7. OMEPRAZOLE [Concomitant]
     Indication: ANGINA PECTORIS
     Dosage: 40 MG, 1X/DAY
     Dates: start: 19990726
  8. SUCRALFATE [Concomitant]
     Indication: ANGINA PECTORIS
     Dosage: 1 G, 4X/DAY
     Dates: start: 19990726

REACTIONS (2)
  - Atrial fibrillation [Recovered/Resolved]
  - Drug interaction [Recovered/Resolved]
